FAERS Safety Report 7326448-3 (Version None)
Quarter: 2011Q1

REPORT INFORMATION
  Report Type: 
  Country: None (occurrence: None)
  Receive Date: 20110302
  Receipt Date: 20110221
  Transmission Date: 20110831
  Serious: Yes (Hospitalization, Other)
  Sender: FDA-Public Use
  Company Number: US-ABBOTT-11P-163-0706729-00

PATIENT
  Age: 64 Year
  Sex: Male

DRUGS (12)
  1. EZETIMIBE/SAMVASTATIN [Interacting]
     Indication: DYSLIPIDAEMIA
     Dosage: 10/80 MG DAILY
     Route: 048
  2. PREDNISONE [Concomitant]
     Indication: PRODUCT USED FOR UNKNOWN INDICATION
     Route: 048
  3. BICALUTAMIDE [Concomitant]
     Indication: PRODUCT USED FOR UNKNOWN INDICATION
     Dates: start: 20080201, end: 20081201
  4. LEUPROLIDE [Suspect]
     Indication: PROSTATE CANCER
     Dates: start: 20030101, end: 20060101
  5. LEVOTHYROXINE [Suspect]
     Indication: PRODUCT USED FOR UNKNOWN INDICATION
     Route: 048
  6. KETOCONAZOLE [Interacting]
     Indication: PRODUCT USED FOR UNKNOWN INDICATION
     Route: 048
     Dates: start: 20090101
  7. VERAPAMIL EXTENDED-RELEASE [Suspect]
     Indication: PRODUCT USED FOR UNKNOWN INDICATION
     Route: 048
  8. LEVOFLOXACIN [Concomitant]
     Indication: URINARY TRACT INFECTION
     Route: 048
  9. LEUPROLIDE [Suspect]
     Dates: start: 20070701
  10. FENOFIBRATE [Suspect]
     Indication: DYSLIPIDAEMIA
     Route: 048
  11. KETOCONAZOLE [Interacting]
     Route: 048
     Dates: start: 20090201
  12. CORTICOSTEROIDS [Concomitant]
     Indication: PRODUCT USED FOR UNKNOWN INDICATION

REACTIONS (3)
  - RHABDOMYOLYSIS [None]
  - DRUG INTERACTION [None]
  - RENAL FAILURE ACUTE [None]
